FAERS Safety Report 8788921 (Version 1)
Quarter: 2012Q4

REPORT INFORMATION
  Report Type: 
  Country: US (occurrence: US)
  Receive Date: 20120917
  Receipt Date: 20120917
  Transmission Date: 20130627
  Serious: No
  Sender: FDA-Public Use
  Company Number: US-PFIZER INC-2012226380

PATIENT
  Sex: Female

DRUGS (1)
  1. NARDIL [Suspect]
     Indication: DEPRESSION
     Dosage: UNK
     Route: 048
     Dates: start: 2008

REACTIONS (1)
  - Thirst [Not Recovered/Not Resolved]
